FAERS Safety Report 4446991-4 (Version None)
Quarter: 2004Q3

REPORT INFORMATION
  Report Type: 
  Country: None (occurrence: None)
  Receive Date: 20040812
  Receipt Date: 20040414
  Transmission Date: 20050211
  Serious: No
  Sender: FDA-Public Use
  Company Number: USA040464924

PATIENT
  Age: 76 Year
  Sex: Male
  Weight: 73 kg

DRUGS (10)
  1. CIALIS [Suspect]
     Indication: ERECTILE DYSFUNCTION
     Dosage: 20 MG
     Dates: start: 20040218
  2. QUININE [Concomitant]
  3. RANITIDINE [Concomitant]
  4. LOSARTAN POTASSIUM [Concomitant]
  5. LOVASTATIN [Concomitant]
  6. ASPIRIN [Concomitant]
  7. SILDENAFIL [Concomitant]
  8. MULTI-VITAMIN [Concomitant]
  9. CHONDROITIN SULFATE [Concomitant]
  10. GLUCOSAMINE [Concomitant]

REACTIONS (2)
  - EJACULATION DISORDER [None]
  - THERAPEUTIC RESPONSE DECREASED [None]
